FAERS Safety Report 10432624 (Version 2)
Quarter: 2014Q3

REPORT INFORMATION
  Report Type: Spontaneous
  Country: US (occurrence: US)
  Receive Date: 20140905
  Receipt Date: 20140905
  Transmission Date: 20150326
  Serious: Yes (Hospitalization, Other)
  Sender: FDA-Public Use
  Company Number: US-NOVOPROD-413927

PATIENT
  Age: 49 Year
  Sex: Male

DRUGS (1)
  1. NOVOLOG [Suspect]
     Active Substance: INSULIN ASPART
     Indication: TYPE 1 DIABETES MELLITUS
     Dosage: UNK
     Route: 058
     Dates: start: 20140613

REACTIONS (5)
  - Blood glucose increased [Recovered/Resolved]
  - Bacterial infection [Recovered/Resolved]
  - Drug ineffective [Recovered/Resolved]
  - Viral infection [Recovered/Resolved]
  - Product quality issue [Recovered/Resolved]
